FAERS Safety Report 9025336 (Version 1)
Quarter: 2012Q4

REPORT INFORMATION
  Report Type: 
  Country: GB (occurrence: GB)
  Receive Date: 20121211
  Receipt Date: 20121211
  Transmission Date: 20130627
  Serious: Yes (Other)
  Sender: FDA-Public Use
  Company Number: PHFR2012GB006342

PATIENT
  Sex: Female

DRUGS (4)
  1. ZOLEDRONATE [Suspect]
     Dosage: UNK
     Dates: start: 20110419, end: 20110419
  2. ZOLEDRONATE [Suspect]
     Dosage: 3 mg, UNK
     Route: 042
     Dates: start: 20120612, end: 20120612
  3. THYROXINE [Concomitant]
     Route: 048
  4. ADCAL-D3 [Concomitant]
     Indication: OSTEOPOROSIS
     Dosage: 1 DF, BID
     Route: 048
     Dates: start: 2010

REACTIONS (4)
  - Blindness transient [Recovered/Resolved]
  - Arrhythmia [Unknown]
  - Embolism [Unknown]
  - Chest pain [Recovered/Resolved]
